FAERS Safety Report 7938546 (Version 3)
Quarter: 2013Q2

REPORT INFORMATION
  Report Type: Spontaneous
  Country: GB (occurrence: GB)
  Receive Date: 20110510
  Receipt Date: 20130415
  Transmission Date: 20140414
  Serious: Yes (Other)
  Sender: FDA-Public Use
  Company Number: PHHY2011GB37063

PATIENT
  Age: 89 Year
  Sex: Male
  Weight: 54 kg

DRUGS (9)
  1. PARACETAMOL [Suspect]
     Indication: ANALGESIC THERAPY
     Dosage: 1 G, QID
  2. WARFARIN [Interacting]
     Indication: DEEP VEIN THROMBOSIS
     Dosage: 4MG/5 MG, UNK
     Route: 048
  3. WARFARIN [Interacting]
     Dosage: 3 MG, UNK
  4. ILOPROST [Interacting]
     Indication: PERIPHERAL ISCHAEMIA
     Dosage: 50 UG, QD
     Route: 042
  5. ALFACALCIDOL [Concomitant]
     Dosage: 250 NG, TID
  6. CALCIUM ERGOCALCIFEROL [Concomitant]
     Dosage: 1 DF, BID
  7. CODEINE PHOSPHATE [Concomitant]
     Indication: ANALGESIC THERAPY
     Dosage: 60 MG, QID
  8. FUROSEMIDE [Concomitant]
     Dosage: 40 MG, QD
  9. TIMOLOL [Concomitant]
     Indication: GLAUCOMA
     Route: 047

REACTIONS (2)
  - International normalised ratio increased [Unknown]
  - Drug interaction [Unknown]
